FAERS Safety Report 10909259 (Version 1)
Quarter: 2015Q1

REPORT INFORMATION
  Report Type: Spontaneous
  Country: US (occurrence: US)
  Receive Date: 20150312
  Receipt Date: 20150312
  Transmission Date: 20150721
  Serious: No
  Sender: FDA-Public Use
  Company Number: US-SA-2014SA038122

PATIENT
  Sex: Female

DRUGS (3)
  1. NASACORT [Suspect]
     Active Substance: TRIAMCINOLONE ACETONIDE
     Indication: HYPERSENSITIVITY
     Dosage: PRODUCT STARTED SEVEN DAYS AGO.
     Route: 065
     Dates: start: 201403, end: 20140324
  2. BECONASE AQ [Concomitant]
     Active Substance: BECLOMETHASONE DIPROPIONATE MONOHYDRATE
  3. ZYRTEC [Concomitant]
     Active Substance: CETIRIZINE HYDROCHLORIDE

REACTIONS (2)
  - Haemoptysis [Unknown]
  - Epistaxis [Unknown]

NARRATIVE: CASE EVENT DATE: 201403
